FAERS Safety Report 7062012-1 (Version None)
Quarter: 2010Q4

REPORT INFORMATION
  Report Type: 
  Country: None (occurrence: None)
  Receive Date: 20101026
  Receipt Date: 20101020
  Transmission Date: 20110411
  Serious: Yes (Hospitalization)
  Sender: FDA-Public Use
  Company Number: A0781626A

PATIENT
  Age: 48 Year
  Sex: Male

DRUGS (5)
  1. AVANDIA [Suspect]
     Route: 048
     Dates: start: 20020322, end: 20061101
  2. AVANDAMET [Suspect]
     Route: 048
     Dates: start: 20040701, end: 20070601
  3. GLUCOTROL [Concomitant]
  4. ZETIA [Concomitant]
  5. GLUCOPHAGE [Concomitant]

REACTIONS (3)
  - CORONARY ARTERY DISEASE [None]
  - MYOCARDIAL INFARCTION [None]
  - MYOCARDIAL ISCHAEMIA [None]
